FAERS Safety Report 4598253-2 (Version None)
Quarter: 2005Q1

REPORT INFORMATION
  Report Type: 
  Country: None (occurrence: None)
  Receive Date: 20050304
  Receipt Date: 20050225
  Transmission Date: 20050727
  Serious: Yes (Hospitalization)
  Sender: FDA-Public Use
  Company Number: AU_041208239

PATIENT
  Age: 76 Year
  Sex: Male

DRUGS (4)
  1. NAVELBINE [Suspect]
     Indication: LYMPHOMA
     Dosage: 37.5MG CYCLIC
     Route: 065
     Dates: start: 20041004, end: 20041124
  2. GEMZAR [Suspect]
     Indication: LYMPHOMA
     Dosage: 1.5G CYCLIC
     Route: 065
     Dates: start: 20041004, end: 20041124
  3. IFOSFAMIDE [Suspect]
     Indication: LYMPHOMA
     Dosage: 4.5G CYCLIC
     Dates: start: 20041117, end: 20041117
  4. PEGFILGRASTIM [Suspect]
     Indication: LYMPHOMA
     Dates: start: 20041012, end: 20041125

REACTIONS (11)
  - ANOREXIA [None]
  - COUGH [None]
  - DELIRIUM [None]
  - FEBRILE NEUTROPENIA [None]
  - LOBAR PNEUMONIA [None]
  - MALAISE [None]
  - MENTAL DISORDER DUE TO A GENERAL MEDICAL CONDITION [None]
  - OESOPHAGEAL CANDIDIASIS [None]
  - PHARYNGOLARYNGEAL PAIN [None]
  - PNEUMONIA FUNGAL [None]
  - SEPTIC SHOCK [None]
